FAERS Safety Report 18623033 (Version 1)
Quarter: 2020Q4

REPORT INFORMATION
  Report Type: Spontaneous
  Country: US (occurrence: US)
  Receive Date: 20201216
  Receipt Date: 20201216
  Transmission Date: 20210114
  Serious: Yes (Death)
  Sender: FDA-Public Use
  Company Number: None

PATIENT
  Age: 49 Year
  Sex: Female

DRUGS (2)
  1. N/A [Concomitant]
     Active Substance: UNSPECIFIED INGREDIENT
  2. AVONEX [Suspect]
     Active Substance: INTERFERON BETA-1A
     Indication: MULTIPLE SCLEROSIS
     Dosage: ?
     Route: 030
     Dates: start: 20160615, end: 20201123

REACTIONS (1)
  - Death [None]

NARRATIVE: CASE EVENT DATE: 20201123
